FAERS Safety Report 18550320 (Version 1)
Quarter: 2020Q4

REPORT INFORMATION
  Report Type: Spontaneous
  Country: BR (occurrence: BR)
  Receive Date: 20201126
  Receipt Date: 20201126
  Transmission Date: 20210114
  Serious: Yes (Hospitalization, Other)
  Sender: FDA-Public Use
  Company Number: NVSC2020BR310577

PATIENT
  Age: 81 Year
  Sex: Female

DRUGS (6)
  1. RIBOCICLIB. [Suspect]
     Active Substance: RIBOCICLIB
     Indication: BREAST CANCER METASTATIC
     Dosage: 200 MG, QD FIRST CYCLE (FROM D1 TO D21 EVERY 28 DAYS)
     Route: 065
  2. RIBOCICLIB. [Suspect]
     Active Substance: RIBOCICLIB
     Dosage: 600 MG, QD THIRD CYCLE
     Route: 065
  3. RIBOCICLIB. [Suspect]
     Active Substance: RIBOCICLIB
     Dosage: 400 MG, QD SECOND CYCLE
     Route: 065
  4. LETROZOLE. [Suspect]
     Active Substance: LETROZOLE
     Indication: BREAST CANCER METASTATIC
     Dosage: 2.5 MG, QD (FOR 5 YEARS)
     Route: 048
  5. DENOSUMAB [Suspect]
     Active Substance: DENOSUMAB
     Indication: PRODUCT USED FOR UNKNOWN INDICATION
     Dosage: 120 MG, QMO (FOR PALLIATIVE PURPOSE)
     Route: 065
  6. FULVESTRANT. [Suspect]
     Active Substance: FULVESTRANT
     Indication: BREAST CANCER METASTATIC
     Dosage: 500 MG (3 DOSES Q14D, THEN MONTHLY DOSES)
     Route: 065

REACTIONS (6)
  - Dyspnoea exertional [Recovered/Resolved]
  - Anaemia [Recovering/Resolving]
  - Bone lesion [Unknown]
  - Asthenia [Unknown]
  - Gastric ulcer [Unknown]
  - Bone pain [Recovering/Resolving]
